FAERS Safety Report 9832678 (Version 3)
Quarter: 2014Q1

REPORT INFORMATION
  Report Type: Report from Study
  Country: JP (occurrence: JP)
  Receive Date: 20140121
  Receipt Date: 20140205
  Transmission Date: 20141002
  Serious: Yes (Hospitalization)
  Sender: FDA-Public Use
  Company Number: JP-PFIZER INC-2013251132

PATIENT
  Age: 71 Year
  Sex: Female
  Weight: 41.8 kg

DRUGS (5)
  1. XALKORI [Suspect]
     Indication: NON-SMALL CELL LUNG CANCER
     Dosage: 250 MG, 2X/DAY
     Route: 048
     Dates: start: 20130822, end: 20130827
  2. LENDORMIN [Concomitant]
     Dosage: 0.25 MG, AS NEEDED
     Route: 048
  3. LOPEMIN [Concomitant]
     Indication: DIARRHOEA
     Dosage: 1 MG, AS NEEDED
     Route: 048
     Dates: start: 20130823, end: 20130824
  4. NEXIUM [Concomitant]
     Indication: NAUSEA
     Dosage: 20 MG, 1X/DAY
     Route: 048
     Dates: start: 20130826, end: 20130827
  5. PRIMPERAN [Concomitant]
     Dosage: 10 MG, AS NEEDED
     Dates: start: 20130822, end: 20130826

REACTIONS (1)
  - Oesophagitis [Recovered/Resolved]
